FAERS Safety Report 6595331-3 (Version None)
Quarter: 2010Q1

REPORT INFORMATION
  Report Type: 
  Country: None (occurrence: None)
  Receive Date: 20100219
  Receipt Date: 20100219
  Transmission Date: 20100710
  Serious: Yes (Life-Threatening, Other)
  Sender: FDA-Public Use
  Company Number: None

PATIENT
  Age: 68 Year
  Sex: Female

DRUGS (10)
  1. HYDROMORPHONE HCL [Suspect]
     Indication: PAIN
     Dosage: 1 MG Q6H SQ
     Route: 058
     Dates: start: 20090826, end: 20090828
  2. LORAZEPAM [Suspect]
     Indication: AGITATION
     Dosage: 1 MG ONCE IV BOLUS
     Route: 040
     Dates: start: 20090828, end: 20090828
  3. ESOMEPRAZOLE MAGNESIUM [Suspect]
  4. LACUTLOSE [Concomitant]
  5. PANTOPRAZOLE [Concomitant]
  6. PROPRANOLOL HYDROCHLORIDE [Concomitant]
  7. PIPERACILLIN AND TAZOBACTAM [Concomitant]
  8. VANCOMYCIN [Concomitant]
  9. DOPAMINE HCL [Concomitant]
  10. FLEXBUMIN [Concomitant]

REACTIONS (3)
  - MIOSIS [None]
  - PAIN [None]
  - SEDATION [None]
